FAERS Safety Report 5464383-6 (Version None)
Quarter: 2007Q3

REPORT INFORMATION
  Report Type: 
  Country: None (occurrence: None)
  Receive Date: 20070921
  Receipt Date: 20070913
  Transmission Date: 20080115
  Serious: Yes (Other)
  Sender: FDA-Public Use
  Company Number: GB-ABBOTT-07P-167-0416960-00

PATIENT
  Age: 33 Year
  Sex: Male

DRUGS (2)
  1. DEPAKOTE [Suspect]
     Indication: CYCLOTHYMIC DISORDER
     Route: 048
     Dates: start: 20070531, end: 20070803
  2. VENLAFAXINE HCL [Concomitant]
     Indication: DEPRESSION
     Route: 048
     Dates: start: 20050101, end: 20070801

REACTIONS (2)
  - BLOOD CREATINE PHOSPHOKINASE INCREASED [None]
  - MYALGIA [None]
